FAERS Safety Report 19454452 (Version 1)
Quarter: 2021Q2

REPORT INFORMATION
  Report Type: Spontaneous
  Country: CA (occurrence: CA)
  Receive Date: 20210623
  Receipt Date: 20210623
  Transmission Date: 20210717
  Serious: Yes (Hospitalization, Other)
  Sender: FDA-Public Use
  Company Number: CA-B.I. PHARMACEUTICALS,INC./RIDGEFIELD-2021-BI-110999

PATIENT
  Age: 11 Year
  Sex: Male

DRUGS (38)
  1. ROBAXISAL [Suspect]
     Active Substance: ASPIRIN\METHOCARBAMOL
     Indication: PRODUCT USED FOR UNKNOWN INDICATION
     Route: 048
  2. MELATONIN [Suspect]
     Active Substance: MELATONIN
     Indication: CHILD ABUSE
  3. LORAZEPAM. [Suspect]
     Active Substance: LORAZEPAM
     Indication: MUSCLE SPASMS
  4. DULCOLAX NOS [Suspect]
     Active Substance: BISACODYL OR DOCUSATE SODIUM
     Indication: PRODUCT USED FOR UNKNOWN INDICATION
     Route: 048
  5. BACLOFEN. [Suspect]
     Active Substance: BACLOFEN
     Indication: PRODUCT USED FOR UNKNOWN INDICATION
     Route: 048
  6. VITAMIN C [Suspect]
     Active Substance: ASCORBIC ACID
     Indication: PRODUCT USED FOR UNKNOWN INDICATION
     Route: 048
  7. FLUTICASONE. [Suspect]
     Active Substance: FLUTICASONE
     Indication: PRODUCT USED FOR UNKNOWN INDICATION
     Dosage: INTRA?NASAL
  8. PANTOPRAZOLE [Suspect]
     Active Substance: PANTOPRAZOLE
     Indication: PRODUCT USED FOR UNKNOWN INDICATION
     Route: 048
  9. OMEGA?3 FISH OIL [Suspect]
     Active Substance: FISH OIL\OMEGA-3 FATTY ACIDS
     Route: 048
  10. METHADONE [Suspect]
     Active Substance: METHADONE HYDROCHLORIDE
     Indication: BACK PAIN
     Route: 048
  11. MELATONIN [Suspect]
     Active Substance: MELATONIN
     Indication: SLEEP DISORDER
     Route: 048
  12. HYDROMORPHONE [Suspect]
     Active Substance: HYDROMORPHONE
     Indication: PAIN MANAGEMENT
  13. GABAPENTIN. [Suspect]
     Active Substance: GABAPENTIN
     Indication: PAIN MANAGEMENT
     Route: 048
  14. CATAPRES [Suspect]
     Active Substance: CLONIDINE HYDROCHLORIDE
     Indication: PRODUCT USED FOR UNKNOWN INDICATION
     Route: 048
  15. CHOLECALCIFEROL [Suspect]
     Active Substance: CHOLECALCIFEROL
     Indication: VITAMIN SUPPLEMENTATION
     Route: 048
  16. SALBUTAMOL SULFATE [Suspect]
     Active Substance: ALBUTEROL SULFATE
     Dosage: INTRA NASAL
  17. POLYETHYLENE GLYCOL;POTASSIUM CHLORIDE;SODIUM BICARBONATE [Concomitant]
     Active Substance: POLYETHYLENE GLYCOL\POTASSIUM CHLORIDE\SODIUM BICARBONATE
     Indication: PRODUCT USED FOR UNKNOWN INDICATION
  18. PHENOBARBITAL. [Suspect]
     Active Substance: PHENOBARBITAL
     Indication: PRODUCT USED FOR UNKNOWN INDICATION
     Route: 048
  19. ARIPIPRAZOLE. [Suspect]
     Active Substance: ARIPIPRAZOLE
     Indication: PRODUCT USED FOR UNKNOWN INDICATION
     Route: 048
  20. FLUTICASONE. [Suspect]
     Active Substance: FLUTICASONE
     Dosage: 2 DOSAGE FORM INTRANASAL
  21. OMEGA?3 FISH OIL [Suspect]
     Active Substance: FISH OIL\OMEGA-3 FATTY ACIDS
     Indication: PRODUCT USED FOR UNKNOWN INDICATION
     Route: 048
  22. KETOROLAC [Suspect]
     Active Substance: KETOROLAC TROMETHAMINE
     Indication: PAIN
     Route: 048
  23. ROBAXISAL [Suspect]
     Active Substance: ASPIRIN\METHOCARBAMOL
     Route: 048
  24. RANITIDINE. [Suspect]
     Active Substance: RANITIDINE
     Indication: PRODUCT USED FOR UNKNOWN INDICATION
     Route: 048
  25. MELATONIN [Suspect]
     Active Substance: MELATONIN
     Indication: SLEEP DEFICIT
  26. LORAZEPAM. [Suspect]
     Active Substance: LORAZEPAM
     Indication: SEIZURE
     Route: 060
  27. LORAZEPAM. [Suspect]
     Active Substance: LORAZEPAM
     Indication: PAIN MANAGEMENT
     Route: 060
  28. DIPHENHYDRAMINE. [Suspect]
     Active Substance: DIPHENHYDRAMINE
     Indication: PRURITUS
     Route: 048
  29. SALBUTAMOL SULFATE [Suspect]
     Active Substance: ALBUTEROL SULFATE
     Indication: PRODUCT USED FOR UNKNOWN INDICATION
     Dosage: INTRA NASAL?2 DOSAGE FORM
  30. LEUPROLIDE [LEUPRORELIN] [Suspect]
     Active Substance: LEUPROLIDE ACETATE
     Route: 030
  31. EXTRA STRENGTH TYLENOL BACK PAIN [Suspect]
     Active Substance: ACETAMINOPHEN\METHOCARBAMOL
     Indication: BACK PAIN
     Route: 048
  32. DIMENHYDRINATE. [Suspect]
     Active Substance: DIMENHYDRINATE
     Indication: CONSTIPATION
     Route: 048
  33. CLOBAZAM. [Suspect]
     Active Substance: CLOBAZAM
     Indication: BACK PAIN
     Route: 048
  34. MONTELUKAST [Suspect]
     Active Substance: MONTELUKAST SODIUM
     Indication: PRODUCT USED FOR UNKNOWN INDICATION
     Route: 048
  35. LEUPROLIDE [LEUPRORELIN] [Suspect]
     Active Substance: LEUPROLIDE ACETATE
     Indication: PRODUCT USED FOR UNKNOWN INDICATION
     Route: 030
  36. HYDROXYCHLOROQUINE [Suspect]
     Active Substance: HYDROXYCHLOROQUINE
     Indication: PRODUCT USED FOR UNKNOWN INDICATION
     Route: 048
  37. CATAPRES [Suspect]
     Active Substance: CLONIDINE HYDROCHLORIDE
     Route: 048
  38. CELECOXIB. [Suspect]
     Active Substance: CELECOXIB
     Indication: PAIN MANAGEMENT
     Route: 048

REACTIONS (9)
  - Intentional product misuse [Unknown]
  - Juvenile idiopathic arthritis [Unknown]
  - Respiratory depression [Unknown]
  - Drug dependence [Unknown]
  - Drug ineffective [Unknown]
  - Epidural lipomatosis [Unknown]
  - Obesity [Unknown]
  - Victim of child abuse [Unknown]
  - Product prescribing error [Unknown]
